FAERS Safety Report 16201435 (Version 1)
Quarter: 2019Q2

REPORT INFORMATION
  Report Type: Spontaneous
  Country: CN (occurrence: CN)
  Receive Date: 20190416
  Receipt Date: 20190416
  Transmission Date: 20190711
  Serious: Yes (Hospitalization)
  Sender: FDA-Public Use
  Company Number: CN-ASTRAZENECA-2019SE50712

PATIENT
  Age: 39 Year
  Sex: Male
  Weight: 50 kg

DRUGS (1)
  1. TAGRISSO [Suspect]
     Active Substance: OSIMERTINIB
     Indication: LUNG NEOPLASM MALIGNANT
     Route: 048
     Dates: start: 201901

REACTIONS (7)
  - Lymphadenopathy [Unknown]
  - Lymphadenitis [Unknown]
  - Pulmonary cavitation [Unknown]
  - Fungal infection [Unknown]
  - Pneumonia [Unknown]
  - Dysphagia [Unknown]
  - Rash [Unknown]

NARRATIVE: CASE EVENT DATE: 20190314
